FAERS Safety Report 18989733 (Version 2)
Quarter: 2022Q2

REPORT INFORMATION
  Report Type: Report from Study
  Country: CA (occurrence: CA)
  Receive Date: 20210310
  Receipt Date: 20220513
  Transmission Date: 20220721
  Serious: Yes (Other)
  Sender: FDA-Public Use
  Company Number: CA-BIOGEN-2021BI00987386

PATIENT
  Sex: Male

DRUGS (8)
  1. TECFIDERA [Suspect]
     Active Substance: DIMETHYL FUMARATE
     Indication: Multiple sclerosis
     Route: 048
     Dates: start: 20131223
  2. TECFIDERA [Suspect]
     Active Substance: DIMETHYL FUMARATE
     Route: 048
     Dates: start: 20131222
  3. ACARIZAX [Concomitant]
     Active Substance: DERMATOPHAGOIDES FARINAE\DERMATOPHAGOIDES PTERONYSSINUS
     Indication: Product used for unknown indication
     Route: 065
  4. NORTRIPTYLINE HYDROCHLORIDE [Concomitant]
     Active Substance: NORTRIPTYLINE HYDROCHLORIDE
     Indication: Product used for unknown indication
     Route: 065
  5. BACLOFEN [Concomitant]
     Active Substance: BACLOFEN
     Indication: Product used for unknown indication
     Route: 065
  6. Perind/Indapa [Concomitant]
     Indication: Product used for unknown indication
     Route: 065
  7. Rusovastin [Concomitant]
     Indication: Product used for unknown indication
     Route: 065
  8. Cetrizine HCL [Concomitant]
     Indication: Product used for unknown indication
     Route: 065

REACTIONS (4)
  - Blindness unilateral [Unknown]
  - Hypertension [Unknown]
  - Blood cholesterol increased [Unknown]
  - Blood glucose increased [Unknown]
